FAERS Safety Report 6435795-9 (Version None)
Quarter: 2009Q4

REPORT INFORMATION
  Report Type: 
  Country: None (occurrence: None)
  Receive Date: 20091111
  Receipt Date: 20091106
  Transmission Date: 20100525
  Serious: Yes (Other)
  Sender: FDA-Public Use
  Company Number: FR-BRISTOL-MYERS SQUIBB COMPANY-14802185

PATIENT
  Age: 51 Year
  Sex: Male
  Weight: 90 kg

DRUGS (5)
  1. HYDREA [Suspect]
     Indication: POLYCYTHAEMIA
     Dosage: 2 DF = 2 TABS ON 15OCT09 DOSE REDUCED TO 1 CAP/DAY.
     Dates: start: 20080501
  2. HYDREA [Suspect]
     Indication: THROMBOCYTOPENIA
     Dosage: 2 DF = 2 TABS ON 15OCT09 DOSE REDUCED TO 1 CAP/DAY.
     Dates: start: 20080501
  3. PREVISCAN [Concomitant]
     Indication: POLYCYTHAEMIA
     Dates: start: 20080501
  4. INIPOMP [Concomitant]
  5. ORACILLINE [Concomitant]
     Indication: POLYCYTHAEMIA
     Dosage: 1 DF= 2,000,000 UNITS /D
     Dates: start: 20080501

REACTIONS (1)
  - HYPERTHYROIDISM [None]
